FAERS Safety Report 23576420 (Version 1)
Quarter: 2024Q1

REPORT INFORMATION
  Report Type: Spontaneous
  Country: US (occurrence: None)
  Receive Date: 20240228
  Receipt Date: 20240228
  Transmission Date: 20240410
  Serious: No
  Sender: FDA-Public Use
  Company Number: None

PATIENT
  Age: 67 Year
  Sex: Male
  Weight: 79.65 kg

DRUGS (2)
  1. ENVARSUS XR [Suspect]
     Active Substance: TACROLIMUS
  2. MYCOPHENOLATE MOFETIL [Suspect]
     Active Substance: MYCOPHENOLATE MOFETIL

REACTIONS (7)
  - Swelling [None]
  - Oedema peripheral [None]
  - Alopecia [None]
  - Alopecia [None]
  - Pruritus [None]
  - Feeling cold [None]
  - Burning sensation [None]

NARRATIVE: CASE EVENT DATE: 20240228
